FAERS Safety Report 18409174 (Version 10)
Quarter: 2021Q3

REPORT INFORMATION
  Report Type: Report from Study
  Country: US (occurrence: US)
  Receive Date: 20201021
  Receipt Date: 20210726
  Transmission Date: 20211014
  Serious: Yes (Other)
  Sender: FDA-Public Use
  Company Number: US-BIOVITRUM-2020US5560

PATIENT
  Age: 44 Year
  Sex: Female

DRUGS (12)
  1. PREDNISONE. [Suspect]
     Active Substance: PREDNISONE
     Indication: PRODUCT USED FOR UNKNOWN INDICATION
  2. PEPCID [Concomitant]
     Active Substance: FAMOTIDINE
  3. MIRALAX [Concomitant]
     Active Substance: POLYETHYLENE GLYCOL 3350
  4. MODERNA COVID?19 VACCINE [Suspect]
     Active Substance: CX-024414
     Indication: COVID-19 PROPHYLAXIS
     Route: 065
  5. LINZESS [Concomitant]
     Active Substance: LINACLOTIDE
  6. CLARITIN [Concomitant]
     Active Substance: LORATADINE
  7. KINERET [Suspect]
     Active Substance: ANAKINRA
     Indication: SCHNITZLER^S SYNDROME
     Route: 058
     Dates: start: 20201008
  8. KINERET [Suspect]
     Active Substance: ANAKINRA
     Indication: MONOCLONAL GAMMOPATHY
     Route: 058
     Dates: start: 20190925
  9. CARAFATE [Concomitant]
     Active Substance: SUCRALFATE
  10. PREDNISONE. [Suspect]
     Active Substance: PREDNISONE
  11. KINERET [Suspect]
     Active Substance: ANAKINRA
     Route: 058
     Dates: start: 20201023
  12. WELLBUTRIN [Concomitant]
     Active Substance: BUPROPION HYDROCHLORIDE

REACTIONS (18)
  - Postural orthostatic tachycardia syndrome [Unknown]
  - Bone pain [Unknown]
  - Dyspnoea [Unknown]
  - Urticaria [Unknown]
  - Off label use [Not Recovered/Not Resolved]
  - Influenza like illness [Unknown]
  - Injection site pain [Not Recovered/Not Resolved]
  - Injection site reaction [Unknown]
  - Oral infection [Unknown]
  - Tachycardia [Unknown]
  - Insomnia [Unknown]
  - Oropharyngeal pain [Unknown]
  - Cardiac disorder [Unknown]
  - Injection site bruising [Unknown]
  - Injection site mass [Unknown]
  - Gingivitis [Unknown]
  - Gastric ulcer [Unknown]
  - Pyrexia [Unknown]

NARRATIVE: CASE EVENT DATE: 20190925
